FAERS Safety Report 25029093 (Version 1)
Quarter: 2025Q1

REPORT INFORMATION
  Report Type: Spontaneous
  Country: CR (occurrence: CR)
  Receive Date: 20250303
  Receipt Date: 20250303
  Transmission Date: 20250409
  Serious: Yes (Other)
  Sender: NOVO NORDISK
  Company Number: CR-NOVOPROD-1360971

PATIENT
  Sex: Female

DRUGS (5)
  1. SAXENDA [Suspect]
     Active Substance: LIRAGLUTIDE
     Indication: Product used for unknown indication
  2. SAXENDA [Suspect]
     Active Substance: LIRAGLUTIDE
  3. SAXENDA [Suspect]
     Active Substance: LIRAGLUTIDE
  4. SAXENDA [Suspect]
     Active Substance: LIRAGLUTIDE
  5. SAXENDA [Suspect]
     Active Substance: LIRAGLUTIDE

REACTIONS (7)
  - Syncope [Unknown]
  - Pain [Unknown]
  - General physical health deterioration [Unknown]
  - Headache [Unknown]
  - Nausea [Unknown]
  - Weight loss poor [Unknown]
  - Drug ineffective [Unknown]
